FAERS Safety Report 8777437 (Version 1)
Quarter: 2012Q4

REPORT INFORMATION
  Report Type: 
  Country: US (occurrence: US)
  Receive Date: 20120911
  Receipt Date: 20120911
  Transmission Date: 20130627
  Serious: No
  Sender: FDA-Public Use
  Company Number: US-ASTRAZENECA-2012SE65161

PATIENT
  Age: 63 Year
  Sex: Female
  Weight: 146.1 kg

DRUGS (17)
  1. NEXIUM [Suspect]
     Indication: GASTROOESOPHAGEAL REFLUX DISEASE
     Route: 048
     Dates: start: 20110504
  2. LISINOPRIL [Suspect]
     Route: 048
  3. METOPROLOL [Suspect]
     Route: 048
  4. CRESTOR [Suspect]
     Route: 048
     Dates: start: 20120406
  5. CRESTOR [Suspect]
     Route: 048
  6. POTASSIUM CHLORIDE LIQUID [Concomitant]
     Dosage: 20MEQ (15ML) SUS TWICE DAILY
     Dates: start: 20120816
  7. CYCLOBENZAPRINE HCL [Concomitant]
     Route: 048
     Dates: start: 20120730
  8. AMITRIPTYLINE HCL [Concomitant]
     Dates: start: 20120817
  9. XOPENEX [Concomitant]
     Dosage: 1 INH EVERY 8 HRS
     Route: 055
     Dates: start: 20120406
  10. NITROSTAT [Concomitant]
     Indication: CHEST PAIN
     Dosage: 1 TAB EVERY FIVE MIN, MAXIMUM 3 DOSES
     Route: 060
     Dates: start: 20120406
  11. FLOVENT HFA [Concomitant]
     Dosage: 220 MCG, 2 PUFFS, TWICE DAILY, PRN
     Dates: start: 20120406
  12. DUONEB [Concomitant]
     Dosage: 3/0.5MG, 3 ML, EVERY 6 HRS
     Dates: start: 20120406
  13. DETROL LA [Concomitant]
     Dates: start: 20120504
  14. ASPIRIN [Concomitant]
     Dates: start: 20120504
  15. LEVOXYL [Concomitant]
  16. ALLOPURINOL [Concomitant]
  17. METFORMIN HCL [Concomitant]

REACTIONS (23)
  - Back pain [Unknown]
  - Coronary artery disease [Unknown]
  - Hypothyroidism [Unknown]
  - Sleep apnoea syndrome [Unknown]
  - Urge incontinence [Unknown]
  - Chronic obstructive pulmonary disease [Unknown]
  - Dysphagia [Unknown]
  - Hypertension [Unknown]
  - Hyperlipidaemia [Unknown]
  - Fibromyalgia [Unknown]
  - Obesity [Unknown]
  - Type 2 diabetes mellitus [Unknown]
  - Intervertebral disc protrusion [Unknown]
  - Dyslipidaemia [Unknown]
  - Breast mass [Unknown]
  - Chest pain [Unknown]
  - Stress [Unknown]
  - Oesophageal food impaction [Unknown]
  - Weight increased [Unknown]
  - Anxiety [Unknown]
  - Erythema [Unknown]
  - Skin disorder [Unknown]
  - Drug dose omission [Unknown]
